FAERS Safety Report 18203615 (Version 1)
Quarter: 2020Q3

REPORT INFORMATION
  Report Type: Spontaneous
  Country: FR (occurrence: FR)
  Receive Date: 20200827
  Receipt Date: 20200827
  Transmission Date: 20201103
  Serious: Yes (Hospitalization)
  Sender: FDA-Public Use
  Company Number: FR-MYLANLABS-2020M1073290

PATIENT
  Age: 75 Year
  Sex: Male
  Weight: 86 kg

DRUGS (13)
  1. DULOXETINE                         /01749302/ [Concomitant]
     Active Substance: DULOXETINE
     Dosage: 30 MILLIGRAM, QD
     Route: 048
  2. PREGABALINE [Concomitant]
     Active Substance: PREGABALIN
     Dosage: 75 MILLIGRAM, QD
     Route: 048
  3. OMEPRAZOLE SODIUM [Concomitant]
     Active Substance: OMEPRAZOLE SODIUM
     Dosage: 20 MILLIGRAM, QD
     Route: 048
  4. METFORMINE                         /00082701/ [Concomitant]
     Active Substance: METFORMIN HYDROCHLORIDE
     Dosage: 1500 MILLIGRAM, QD
     Route: 048
  5. BROMAZEPAM [Concomitant]
     Active Substance: BROMAZEPAM
     Dosage: 3 MILLIGRAM, QD
     Route: 048
  6. TRULICITY [Concomitant]
     Active Substance: DULAGLUTIDE
     Dosage: 1.5 MILLIGRAM, QW
     Route: 058
  7. ASPEGIC                            /00002703/ [Concomitant]
     Active Substance: ASPIRIN DL-LYSINE
     Dosage: 100 MILLIGRAM, QD
     Route: 048
  8. BETAXOLOL HYDROCHLORIDE. [Suspect]
     Active Substance: BETAXOLOL HYDROCHLORIDE
     Indication: PRODUCT USED FOR UNKNOWN INDICATION
     Dosage: 20 MILLIGRAM, QD
     Route: 048
     Dates: start: 20200117, end: 20200616
  9. ROSUVASTATINE                      /01588602/ [Concomitant]
     Dosage: 5 MILLIGRAM, QD
     Route: 048
  10. ATENOLOL. [Suspect]
     Active Substance: ATENOLOL
     Indication: HYPERTENSION
     Dosage: 50 MILLIGRAM, QD
     Route: 048
     Dates: start: 20191218
  11. LEVOTHYROX [Concomitant]
     Active Substance: LEVOTHYROXINE
     Dosage: 100 MICROGRAM, QD
     Route: 048
  12. TOUJEO [Concomitant]
     Active Substance: INSULIN GLARGINE
     Dosage: 14 INTERNATIONAL UNIT, QD
     Route: 058
  13. LERCANIDIPINE                      /01366402/ [Concomitant]
     Active Substance: LERCANIDIPINE HYDROCHLORIDE
     Dosage: 10 MILLIGRAM, QD
     Route: 048

REACTIONS (3)
  - Fall [Recovering/Resolving]
  - Wrong drug [Recovered/Resolved]
  - Product dispensing error [Recovered/Resolved]

NARRATIVE: CASE EVENT DATE: 20200117
